FAERS Safety Report 10914066 (Version 2)
Quarter: 2015Q1

REPORT INFORMATION
  Report Type: Spontaneous
  Country: US (occurrence: None)
  Receive Date: 20150310
  Receipt Date: 20150327
  Transmission Date: 20150721
  Serious: Yes (Other)
  Sender: FDA-Public Use
  Company Number: 2015SUP00020

PATIENT
  Age: 21 Year
  Sex: Male
  Weight: 125.2 kg

DRUGS (2)
  1. VITAMIN C [Concomitant]
     Active Substance: ASCORBIC ACID
  2. OXTELLAR XR [Suspect]
     Active Substance: OXCARBAZEPINE
     Indication: SEIZURE
     Route: 048
     Dates: start: 201501

REACTIONS (8)
  - Erythema [None]
  - Drug ineffective [None]
  - Skin exfoliation [None]
  - Skin texture abnormal [None]
  - Stomatitis [None]
  - Papule [None]
  - Mouth haemorrhage [None]
  - Simple partial seizures [None]

NARRATIVE: CASE EVENT DATE: 201502
